FAERS Safety Report 4621985-4 (Version None)
Quarter: 2005Q1

REPORT INFORMATION
  Report Type: 
  Country: None (occurrence: None)
  Receive Date: 20050329
  Receipt Date: 20050323
  Transmission Date: 20050727
  Serious: Yes (Life-Threatening)
  Sender: FDA-Public Use
  Company Number: US-MERCK-0503USA04129

PATIENT
  Age: 56 Year
  Sex: Female

DRUGS (6)
  1. VIOXX [Suspect]
     Indication: ARTHRITIS
     Route: 048
     Dates: start: 20000501, end: 20030501
  2. ZANTAC [Concomitant]
     Route: 065
  3. RANITIDINE [Concomitant]
     Route: 065
  4. MAXALT [Concomitant]
     Route: 065
  5. ALLEGRA [Concomitant]
     Route: 065
  6. ACULAR [Concomitant]
     Route: 065

REACTIONS (4)
  - ABDOMINAL PAIN UPPER [None]
  - ANXIETY [None]
  - CHEST PAIN [None]
  - PALPITATIONS [None]
